FAERS Safety Report 5416269-0 (Version None)
Quarter: 2007Q3

REPORT INFORMATION
  Report Type: 
  Country: None (occurrence: None)
  Receive Date: 20070718
  Receipt Date: 20070306
  Transmission Date: 20080115
  Serious: Yes (Hospitalization, Other)
  Sender: FDA-Public Use
  Company Number: 2007014241

PATIENT
  Age: 36 Year
  Sex: Female
  Weight: 107 kg

DRUGS (1)
  1. CELEBREX [Suspect]
     Indication: BACK PAIN
     Dosage: 200 MG (100 MG, 2 IN 1 D)
     Dates: start: 20000301, end: 20040628

REACTIONS (3)
  - CEREBROVASCULAR DISORDER [None]
  - MYOCARDIAL INFARCTION [None]
  - PULMONARY EMBOLISM [None]
